FAERS Safety Report 7012976-7 (Version None)
Quarter: 2010Q3

REPORT INFORMATION
  Report Type: 
  Country: None (occurrence: None)
  Receive Date: 20100924
  Receipt Date: 20100915
  Transmission Date: 20110219
  Serious: Yes (Other)
  Sender: FDA-Public Use
  Company Number: PHHY2010DE45066

PATIENT
  Sex: Male
  Weight: 56.8 kg

DRUGS (1)
  1. EXELON [Suspect]
     Dosage: 9.5 MG
     Route: 062
     Dates: start: 20090901, end: 20100701

REACTIONS (1)
  - ELECTROCARDIOGRAM QT PROLONGED [None]
